FAERS Safety Report 4958757-7 (Version None)
Quarter: 2006Q1

REPORT INFORMATION
  Report Type: 
  Country: None (occurrence: None)
  Receive Date: 20060127
  Receipt Date: 20050121
  Transmission Date: 20060701
  Serious: Yes (Hospitalization)
  Sender: FDA-Public Use
  Company Number: 05-01-0100

PATIENT
  Age: 48 Year
  Sex: Female

DRUGS (2)
  1. CLOZAPINE [Suspect]
     Indication: BORDERLINE PERSONALITY DISORDER
     Dosage: 200-475 MG QD ORAL
     Route: 048
     Dates: start: 20030301
  2. CLOZAPINE [Suspect]
     Indication: MAJOR DEPRESSION
     Dosage: 200-475 MG QD ORAL
     Route: 048
     Dates: start: 20030301

REACTIONS (4)
  - DRUG INEFFECTIVE FOR UNAPPROVED INDICATION [None]
  - INFLUENZA LIKE ILLNESS [None]
  - PYREXIA [None]
  - SUICIDAL IDEATION [None]
